FAERS Safety Report 4432023-0 (Version None)
Quarter: 2004Q3

REPORT INFORMATION
  Report Type: 
  Country: None (occurrence: None)
  Receive Date: 20040819
  Receipt Date: 50040811
  Transmission Date: 20050211
  Serious: No
  Sender: FDA-Public Use
  Company Number: 2004UW17139

PATIENT
  Age: 60 Year
  Sex: Male

DRUGS (1)
  1. ELAVIL [Suspect]
     Indication: MAJOR DEPRESSION
     Dosage: 70 MG DAILY PO
     Route: 048

REACTIONS (2)
  - METABOLIC ALKALOSIS [None]
  - NEUROLEPTIC MALIGNANT SYNDROME [None]
